FAERS Safety Report 7718403-6 (Version None)
Quarter: 2011Q3

REPORT INFORMATION
  Report Type: 
  Country: None (occurrence: None)
  Receive Date: 20110830
  Receipt Date: 20110823
  Transmission Date: 20111222
  Serious: Yes (Other)
  Sender: FDA-Public Use
  Company Number: PHEH2011US01965

PATIENT
  Sex: Male

DRUGS (13)
  1. OMEPRAZOLE [Concomitant]
     Dosage: 20 MG, QD
  2. ISOSORBIDE MONONITRATE [Concomitant]
     Dosage: 30 MG, QD
  3. FENOFIBRATE [Concomitant]
     Dosage: 160 MG, QD
  4. ZETIA [Concomitant]
     Dosage: 10 MG, QD
  5. LISINOPRIL [Concomitant]
     Dosage: 20 MG, QD
  6. FISH OIL [Concomitant]
     Dosage: 40000 MG, QD
  7. GLEEVEC [Suspect]
     Indication: CHRONIC MYELOID LEUKAEMIA
     Dosage: 400 MG, QD
     Route: 048
  8. COUMADIN [Interacting]
     Dosage: 5 MG, UNK
  9. PRAVASTATIN [Concomitant]
     Dosage: 40 MG, QD
  10. FLUOXETINE [Concomitant]
     Dosage: 20 MG, QD
  11. TEMAZEPAM [Concomitant]
     Dosage: 30 MG, QD
  12. SOTALOL HYDROCHLORIDE [Concomitant]
     Dosage: 120 MG, BID
  13. CARVEDILOL [Concomitant]
     Dosage: 25 MG, BID

REACTIONS (4)
  - MALAISE [None]
  - CARDIAC DISORDER [None]
  - DRUG LEVEL DECREASED [None]
  - NAUSEA [None]
